FAERS Safety Report 10023324 (Version 1)
Quarter: 2014Q1

REPORT INFORMATION
  Report Type: Spontaneous
  Country: US (occurrence: US)
  Receive Date: 20140320
  Receipt Date: 20140320
  Transmission Date: 20141002
  Serious: No
  Sender: FDA-Public Use
  Company Number: US-BIOGENIDEC-2014BI026262

PATIENT
  Age: 64 Year
  Sex: Female

DRUGS (15)
  1. AVONEX [Suspect]
     Indication: MULTIPLE SCLEROSIS
     Route: 030
     Dates: start: 20120213
  2. ADVAIR HFA [Concomitant]
  3. ASPIR-81 [Concomitant]
  4. CARBIDOPA-LEVODOPA [Concomitant]
  5. CYMBALTA [Concomitant]
  6. FLUTICASONE PROPIONATE [Concomitant]
  7. LOSARTAN POTASSIUM [Concomitant]
  8. MUCINEX [Concomitant]
  9. METFORMIN HCL [Concomitant]
  10. OMEPRAZOLE [Concomitant]
  11. OXCARBAZEPINE [Concomitant]
  12. PRAVASTATIN SODIUM [Concomitant]
  13. SINGULAIR [Concomitant]
  14. VENTOLIN HFA [Concomitant]
  15. VERAPAMIL HCL CR [Concomitant]

REACTIONS (1)
  - Multiple allergies [Unknown]
